FAERS Safety Report 7690673-2 (Version None)
Quarter: 2011Q3

REPORT INFORMATION
  Report Type: 
  Country: None (occurrence: None)
  Receive Date: 20110818
  Receipt Date: 20110811
  Transmission Date: 20111222
  Serious: Yes (Hospitalization)
  Sender: FDA-Public Use
  Company Number: US-PFIZER INC-2011084794

PATIENT
  Sex: Male
  Weight: 81.633 kg

DRUGS (13)
  1. PLAVIX [Concomitant]
     Dosage: 75 MG, 1X/DAY
     Route: 048
  2. RANITIDINE [Concomitant]
     Dosage: 150 MG, 2X/DAY
     Route: 048
  3. CRESTOR [Concomitant]
     Dosage: 5 MG, 1X/DAY BEFORE BED
     Route: 048
  4. STARLIX [Concomitant]
     Indication: DIABETES MELLITUS
     Dosage: 60 MG, 3X/DAY
     Route: 048
  5. LEVOTHYROXINE [Concomitant]
     Dosage: 50 MCG, 1X/DAY
     Route: 048
  6. TOVIAZ [Suspect]
     Indication: URINARY INCONTINENCE
     Dosage: 4 MG, 1X/DAY
     Route: 048
     Dates: start: 20110314, end: 20110316
  7. CLOTRIMAZOLE [Concomitant]
     Dosage: 1 APPLICATION TWICE A DAY BY MOUTH
     Route: 061
  8. LORTAB [Concomitant]
     Indication: PAIN
     Dosage: 7.5 MG-500 MG, 1 TAB AS NEEDED
     Route: 048
  9. LOTRISONE [Concomitant]
     Dosage: 1 CREAM TWICE A DAY TO AFFECTED
     Route: 061
  10. EXELON [Concomitant]
     Dosage: 4.5 MG, 2X/DAY
     Route: 048
  11. BUPROPION HYDROCHLORIDE [Concomitant]
     Dosage: 150 MG, 2X/DAY
     Route: 048
  12. FLOMAX [Concomitant]
     Dosage: 0.4 MG, 2X/DAY
     Route: 048
  13. ENABLEX [Concomitant]
     Dosage: 15 MG, 1X/DAY
     Route: 048

REACTIONS (2)
  - PYELONEPHRITIS [None]
  - URINARY RETENTION [None]
